FAERS Safety Report 20350986 (Version 1)
Quarter: 2022Q1

REPORT INFORMATION
  Report Type: Spontaneous
  Country: CA (occurrence: CA)
  Receive Date: 20220119
  Receipt Date: 20220119
  Transmission Date: 20220423
  Serious: Yes (Other)
  Sender: FDA-Public Use
  Company Number: CA-JNJFOC-20220129042

PATIENT
  Sex: Male

DRUGS (3)
  1. REMICADE [Suspect]
     Active Substance: INFLIXIMAB
     Indication: Product used for unknown indication
     Route: 042
  2. METHOTREXATE [Concomitant]
     Active Substance: METHOTREXATE
  3. NAPROXEN [Concomitant]
     Active Substance: NAPROXEN

REACTIONS (1)
  - Malignant melanoma [Unknown]
